FAERS Safety Report 11596900 (Version 2)
Quarter: 2015Q4

REPORT INFORMATION
  Report Type: Spontaneous
  Country: US (occurrence: US)
  Receive Date: 20151006
  Receipt Date: 20151019
  Transmission Date: 20160304
  Serious: Yes (Death)
  Sender: FDA-Public Use
  Company Number: US-CANGENE-145669

PATIENT
  Age: 83 Year
  Sex: Male
  Weight: 88 kg

DRUGS (4)
  1. NOREPINEPHRINE [Concomitant]
     Active Substance: NOREPINEPHRINE\NOREPINEPHRINE BITARTRATE
     Indication: HYPOTENSION
  2. VASOPRESSIN. [Concomitant]
     Active Substance: VASOPRESSIN
     Indication: HYPOTENSION
  3. BAT [Suspect]
     Active Substance: EQUINE BOTULINUM NEUROTOXIN A/B/C/D/E/F/G IMMUNE FAB2
     Indication: BOTULISM
     Dosage: RATE OF INFUSION 0.5 ML/MIN
     Dates: start: 20150906, end: 20150906
  4. BENADRYL [Concomitant]
     Active Substance: DIPHENHYDRAMINE HYDROCHLORIDE
     Indication: PREMEDICATION
     Dates: start: 20150906, end: 20150906

REACTIONS (4)
  - Ventricular tachycardia [Recovered/Resolved]
  - Respiratory failure [Unknown]
  - Haemodynamic instability [Unknown]
  - Hypotension [Unknown]

NARRATIVE: CASE EVENT DATE: 20150906
